FAERS Safety Report 16682854 (Version 1)
Quarter: 2019Q3

REPORT INFORMATION
  Report Type: Spontaneous
  Country: FR (occurrence: FR)
  Receive Date: 20190808
  Receipt Date: 20190808
  Transmission Date: 20191004
  Serious: Yes (Other)
  Sender: FDA-Public Use
  Company Number: FR-PFIZER INC-2019309916

PATIENT
  Age: 68 Year
  Sex: Female

DRUGS (7)
  1. POLARAMINE [Suspect]
     Active Substance: DEXCHLORPHENIRAMINE MALEATE
     Indication: ALLERGY PROPHYLAXIS
     Dosage: 5 MG, CYCLIC
     Route: 042
     Dates: start: 20190605, end: 20190605
  2. AZANTAC [Suspect]
     Active Substance: RANITIDINE HYDROCHLORIDE
     Indication: ALLERGY PROPHYLAXIS
     Dosage: 50 MG, CYCLIC
     Route: 042
     Dates: start: 20190605, end: 20190605
  3. PACLITAXEL. [Suspect]
     Active Substance: PACLITAXEL
     Indication: ADENOCARCINOMA
     Dosage: 73 MG, UNK
     Route: 042
     Dates: start: 20190605
  4. EMEND [Suspect]
     Active Substance: APREPITANT
     Indication: PROPHYLAXIS OF NAUSEA AND VOMITING
     Dosage: 125 MG, SINGLE
     Route: 048
     Dates: start: 20190605, end: 20190605
  5. DEXAMETHASONE MYLAN 4 MG/1 ML [Suspect]
     Active Substance: DEXAMETHASONE
     Indication: ALLERGY PROPHYLAXIS
     Dosage: 8 MG, CYCLIC
     Route: 042
     Dates: start: 20190605, end: 20190605
  6. EMEND [Suspect]
     Active Substance: APREPITANT
     Dosage: 80 MG, 1X/DAY
     Route: 048
     Dates: start: 20190606, end: 20190607
  7. PACLITAXEL KABI [Suspect]
     Active Substance: PACLITAXEL
     Indication: ADENOCARCINOMA
     Dosage: 73 MG, CYCLIC
     Route: 042
     Dates: start: 20190605, end: 20190605

REACTIONS (4)
  - Feeling hot [Recovered/Resolved]
  - Arthralgia [Recovered/Resolved]
  - Hypersensitivity [Recovered/Resolved]
  - Erythema [Recovered/Resolved]

NARRATIVE: CASE EVENT DATE: 20190605
